FAERS Safety Report 7300589-9 (Version None)
Quarter: 2011Q1

REPORT INFORMATION
  Report Type: 
  Country: None (occurrence: None)
  Receive Date: 20110218
  Receipt Date: 20110203
  Transmission Date: 20110831
  Serious: No
  Sender: FDA-Public Use
  Company Number: US-BIOGENIDEC-2011BI005129

PATIENT
  Age: 62 Year
  Sex: Female

DRUGS (3)
  1. AVONEX [Concomitant]
     Indication: MULTIPLE SCLEROSIS
     Route: 030
     Dates: start: 20010618, end: 20060918
  2. TYSABRI [Suspect]
     Indication: MULTIPLE SCLEROSIS
     Route: 042
     Dates: start: 20061024
  3. TYSABRI [Suspect]
     Route: 042
     Dates: start: 20050224, end: 20050224

REACTIONS (2)
  - ADNEXA UTERI PAIN [None]
  - OVARIAN DISORDER [None]
